FAERS Safety Report 7717296-0 (Version None)
Quarter: 2011Q3

REPORT INFORMATION
  Report Type: 
  Country: None (occurrence: None)
  Receive Date: 20110818
  Receipt Date: 20110718
  Transmission Date: 20111222
  Serious: No
  Sender: FDA-Public Use
  Company Number: 1000022271

PATIENT
  Age: 47 Year
  Sex: Female

DRUGS (2)
  1. XANAX [Concomitant]
  2. VIIBRYD [Suspect]
     Indication: MAJOR DEPRESSION
     Dosage: 10 MG (10 MG, 1 IN 1 D), ORAL
     Route: 048
     Dates: start: 20110707, end: 20110716

REACTIONS (8)
  - ARTHRALGIA [None]
  - WEIGHT INCREASED [None]
  - ABNORMAL DREAMS [None]
  - HYPERHIDROSIS [None]
  - OEDEMA PERIPHERAL [None]
  - FLUID RETENTION [None]
  - RASH [None]
  - JOINT SWELLING [None]
